FAERS Safety Report 21803642 (Version 1)
Quarter: 2023Q1

REPORT INFORMATION
  Report Type: Spontaneous
  Country: US (occurrence: US)
  Receive Date: 20230102
  Receipt Date: 20230102
  Transmission Date: 20230417
  Serious: No
  Sender: FDA-Public Use
  Company Number: US-BRISTOL-MYERS SQUIBB COMPANY-2022-161125

PATIENT
  Age: 66 Year
  Sex: Male
  Weight: 101.6 kg

DRUGS (1)
  1. REVLIMID [Suspect]
     Active Substance: LENALIDOMIDE
     Indication: Product used for unknown indication
     Dosage: FREQ:  14D ON 7D OFF
     Route: 048

REACTIONS (5)
  - Abdominal pain upper [Unknown]
  - Abdominal distension [Unknown]
  - Peripheral swelling [Unknown]
  - Gait disturbance [Unknown]
  - Peripheral swelling [Unknown]
